FAERS Safety Report 20815781 (Version 3)
Quarter: 2023Q2

REPORT INFORMATION
  Report Type: Spontaneous
  Country: US (occurrence: US)
  Receive Date: 20220511
  Receipt Date: 20230608
  Transmission Date: 20230722
  Serious: No
  Sender: FDA-Public Use
  Company Number: US-PFIZER INC-202200268758

PATIENT
  Age: 61 Year
  Sex: Female

DRUGS (2)
  1. XELJANZ [Suspect]
     Active Substance: TOFACITINIB CITRATE
     Dosage: 10 MG
     Dates: start: 20191201
  2. XELJANZ [Suspect]
     Active Substance: TOFACITINIB CITRATE
     Dosage: 10 MG
     Dates: start: 20221118, end: 20230414

REACTIONS (6)
  - Dizziness [Unknown]
  - Eye contusion [Unknown]
  - Fall [Unknown]
  - Hypercholesterolaemia [Unknown]
  - Headache [Unknown]
  - Product dose omission issue [Unknown]
